FAERS Safety Report 9232324 (Version 1)
Quarter: 2013Q2

REPORT INFORMATION
  Report Type: Spontaneous
  Country: US (occurrence: US)
  Receive Date: 20130416
  Receipt Date: 20130416
  Transmission Date: 20140414
  Serious: Yes (Hospitalization, Other)
  Sender: FDA-Public Use
  Company Number: US-AMGEN-USASP2013024985

PATIENT
  Sex: Female

DRUGS (5)
  1. PROLIA [Suspect]
     Indication: OSTEOPOROSIS POSTMENOPAUSAL
  2. METFORMIN [Concomitant]
     Indication: BLOOD GLUCOSE ABNORMAL
  3. ASPIRIN [Concomitant]
  4. CALCIUM WITH VITAMIN D             /00944201/ [Concomitant]
  5. VITAMIN B12                        /00056201/ [Concomitant]

REACTIONS (12)
  - Amnesia [Unknown]
  - Rectal haemorrhage [Unknown]
  - Adverse drug reaction [Unknown]
  - Blood glucose abnormal [Unknown]
  - Vertigo [Unknown]
  - Hypersomnia [Unknown]
  - Decreased appetite [Unknown]
  - Confusional state [Unknown]
  - Weight decreased [Unknown]
  - Urinary tract infection [Unknown]
  - Kidney infection [Not Recovered/Not Resolved]
  - Hypertonic bladder [Unknown]
